FAERS Safety Report 7007338-2 (Version None)
Quarter: 2010Q3

REPORT INFORMATION
  Report Type: 
  Country: None (occurrence: None)
  Receive Date: 20100922
  Receipt Date: 20100908
  Transmission Date: 20110219
  Serious: Yes (Other)
  Sender: FDA-Public Use
  Company Number: GB-SANOFI-AVENTIS-2010SA025116

PATIENT
  Age: 62 Year
  Sex: Female
  Weight: 84 kg

DRUGS (1)
  1. PLAQUENIL [Suspect]
     Indication: ARTHRITIS
     Route: 065
     Dates: start: 20091127

REACTIONS (3)
  - DERMATITIS EXFOLIATIVE [None]
  - PRODUCT QUALITY ISSUE [None]
  - RASH GENERALISED [None]
